FAERS Safety Report 14190244 (Version 1)
Quarter: 2017Q4

REPORT INFORMATION
  Report Type: Spontaneous
  Country: US (occurrence: US)
  Receive Date: 20171114
  Receipt Date: 20171114
  Transmission Date: 20180321
  Serious: Yes (Disabling)
  Sender: FDA-Public Use
  Company Number: None

PATIENT
  Age: 71 Year
  Sex: Female
  Weight: 76.5 kg

DRUGS (1)
  1. PROHANCE [Suspect]
     Active Substance: GADOTERIDOL
     Indication: NUCLEAR MAGNETIC RESONANCE IMAGING
     Dosage: ?          OTHER FREQUENCY:ONCE;?
     Route: 040
     Dates: start: 20170918

REACTIONS (7)
  - Nausea [None]
  - Hypotension [None]
  - Incontinence [None]
  - Pruritus [None]
  - Constipation [None]
  - Urinary retention [None]
  - Neurogenic bladder [None]

NARRATIVE: CASE EVENT DATE: 20170918
